FAERS Safety Report 8234764-6 (Version None)
Quarter: 2012Q1

REPORT INFORMATION
  Report Type: 
  Country: None (occurrence: None)
  Receive Date: 20120321
  Receipt Date: 20120312
  Transmission Date: 20120608
  Serious: Yes (Other)
  Sender: FDA-Public Use
  Company Number: 2012SP013696

PATIENT
  Age: 50 Year
  Sex: Female

DRUGS (9)
  1. NEXIUM [Concomitant]
  2. VITAMIN D [Concomitant]
  3. METFORMIN HCL [Concomitant]
  4. COGENTIN [Concomitant]
  5. LEVOTHYROXINE SODIUM [Concomitant]
  6. CITALOPRAM HYDROBROMIDE [Concomitant]
  7. OLANZAPINE [Concomitant]
  8. LITHIUM CARBONATE [Concomitant]
  9. SAPHRIS [Suspect]
     Indication: BIPOLAR I DISORDER
     Dosage: 2 DF;QD;IV
     Route: 012
     Dates: start: 20120201

REACTIONS (3)
  - TREMOR [None]
  - DRUG ADMINISTRATION ERROR [None]
  - HYPOAESTHESIA [None]
